FAERS Safety Report 9661262 (Version 1)
Quarter: 2013Q4

REPORT INFORMATION
  Report Type: Spontaneous
  Country: GB (occurrence: GB)
  Receive Date: 20131031
  Receipt Date: 20131031
  Transmission Date: 20140711
  Serious: Yes (Disabling, Other)
  Sender: FDA-Public Use
  Company Number: GB-MYLANLABS-2013S1023825

PATIENT
  Age: 51 Year
  Sex: Female
  Weight: 71 kg

DRUGS (9)
  1. CLARITHROMYCIN [Suspect]
     Indication: LOWER RESPIRATORY TRACT INFECTION
     Route: 048
     Dates: start: 20130508, end: 20130509
  2. AMITRIPTYLINE [Suspect]
     Indication: RHEUMATOID ARTHRITIS
     Route: 048
     Dates: start: 20130503
  3. BECONASE [Concomitant]
     Indication: SEASONAL ALLERGY
     Route: 045
  4. CETIRIZINE [Concomitant]
     Indication: SEASONAL ALLERGY
     Route: 048
  5. LEFLUNOMIDE [Concomitant]
     Indication: RHEUMATOID ARTHRITIS
     Route: 048
  6. MONTELUKAST [Concomitant]
     Indication: ASTHMA
     Route: 048
  7. PEPPERMINT OIL [Concomitant]
     Indication: IRRITABLE BOWEL SYNDROME
     Route: 048
  8. SALBUTAMOL [Concomitant]
     Indication: ASTHMA
     Route: 055
  9. TRAMADOL [Concomitant]
     Indication: RHEUMATOID ARTHRITIS
     Route: 048

REACTIONS (1)
  - Syncope [Recovered/Resolved]
